FAERS Safety Report 13861316 (Version 1)
Quarter: 2017Q3

REPORT INFORMATION
  Report Type: Spontaneous
  Country: US (occurrence: US)
  Receive Date: 20170811
  Receipt Date: 20170811
  Transmission Date: 20171127
  Serious: No
  Sender: FDA-Public Use
  Company Number: GXBR2017US002060

PATIENT
  Age: 15 Year
  Sex: Female
  Weight: 48.98 kg

DRUGS (1)
  1. AZITHROMYCIN 250 MG [Suspect]
     Active Substance: AZITHROMYCIN ANHYDROUS
     Indication: STREPTOCOCCAL INFECTION
     Dosage: 2 TODAY, THEN 1 QD X 4D
     Route: 065
     Dates: start: 20170622

REACTIONS (1)
  - Abdominal discomfort [Not Recovered/Not Resolved]

NARRATIVE: CASE EVENT DATE: 20170622
